FAERS Safety Report 17099216 (Version 1)
Quarter: 2019Q4

REPORT INFORMATION
  Report Type: Report from Study
  Country: US (occurrence: US)
  Receive Date: 20191202
  Receipt Date: 20191202
  Transmission Date: 20200122
  Serious: Yes (Other)
  Sender: FDA-Public Use
  Company Number: US-EMD SERONO-9131311

PATIENT
  Sex: Female

DRUGS (2)
  1. MAVENCLAD [Suspect]
     Active Substance: CLADRIBINE
     Indication: MULTIPLE SCLEROSIS
     Dosage: YEAR ONE MONTH ONE THERAPY: TWO TABLETS (EACH OF 10 MG) PER DAY FOR 5 DAYS.
     Route: 048
     Dates: start: 20190524, end: 20190528
  2. MAVENCLAD [Suspect]
     Active Substance: CLADRIBINE
     Dosage: YEAR ONE MONTH TWO THERAPY: TWO TABLETS (EACH OF 10 MG) ON DAYS 1 TO 4 AND ONE TABLET ON DAY 5.
     Route: 048

REACTIONS (1)
  - Nephrolithiasis [Unknown]
